FAERS Safety Report 4362144-2 (Version None)
Quarter: 2004Q2

REPORT INFORMATION
  Report Type: 
  Country: None (occurrence: None)
  Receive Date: 20040518
  Receipt Date: 20040503
  Transmission Date: 20050107
  Serious: Yes (Hospitalization)
  Sender: FDA-Public Use
  Company Number: S04-USA-01397-01

PATIENT
  Age: 79 Year
  Sex: Male
  Weight: 83.0083 kg

DRUGS (8)
  1. LEXAPRO [Suspect]
     Indication: DEPRESSION
     Dosage: 10 MG QD PO
     Route: 048
     Dates: start: 20040129, end: 20040201
  2. NORVASC [Concomitant]
  3. TRIAMTERENE AND HYDROCHLOROTHIAZIDE [Concomitant]
  4. ADVAIR DISKUS 100/50 [Concomitant]
  5. PREDNISONE [Concomitant]
  6. LIPITOR [Concomitant]
  7. LUPRON [Concomitant]
  8. CASODEX [Concomitant]

REACTIONS (10)
  - ABASIA [None]
  - ANAEMIA [None]
  - CYTOMEGALOVIRUS ANTIBODY POSITIVE [None]
  - DUPUYTREN'S CONTRACTURE [None]
  - DYSPNOEA EXERTIONAL [None]
  - EPSTEIN-BARR VIRUS ANTIBODY POSITIVE [None]
  - GUILLAIN-BARRE SYNDROME [None]
  - HUMAN HERPES VIRUS 6 SEROLOGY POSITIVE [None]
  - MONONEUROPATHY MULTIPLEX [None]
  - RECTAL HAEMORRHAGE [None]
